FAERS Safety Report 10534605 (Version 2)
Quarter: 2014Q4

REPORT INFORMATION
  Report Type: Spontaneous
  Country: IT (occurrence: IT)
  Receive Date: 20141022
  Receipt Date: 20141107
  Transmission Date: 20150529
  Serious: Yes (Life-Threatening, Hospitalization, Other)
  Sender: FDA-Public Use
  Company Number: IT-GLAXOSMITHKLINE-IT2014GSK004486

PATIENT
  Age: 69 Year
  Sex: Female

DRUGS (3)
  1. DILATREND (CARVEDILOL) [Concomitant]
     Indication: HYPERTENSION
     Route: 048
  2. HYDROCHLOROTHIAZIDE\VALSARTAN [Concomitant]
     Active Substance: HYDROCHLOROTHIAZIDE\VALSARTAN
     Indication: HYPERTENSION
     Dosage: 2 UNK, QD
     Route: 048
  3. VOTRIENT [Suspect]
     Active Substance: PAZOPANIB HYDROCHLORIDE
     Indication: RENAL CELL CARCINOMA
     Dosage: 800 MG, QD
     Route: 048
     Dates: start: 20140318, end: 20141001

REACTIONS (1)
  - Infarction [Recovering/Resolving]

NARRATIVE: CASE EVENT DATE: 20141001
